FAERS Safety Report 7046838-6 (Version None)
Quarter: 2010Q4

REPORT INFORMATION
  Report Type: 
  Country: None (occurrence: None)
  Receive Date: 20101015
  Receipt Date: 20101013
  Transmission Date: 20110411
  Serious: Yes (Death, Hospitalization)
  Sender: FDA-Public Use
  Company Number: US-JNJFOC-20050902465

PATIENT
  Age: 14 Year
  Sex: Female

DRUGS (3)
  1. IBUPROFEN [Suspect]
     Indication: SUICIDE ATTEMPT
     Route: 048
  2. DIPHENHYDRAMINE [Suspect]
     Indication: SUICIDE ATTEMPT
     Route: 048
  3. NAPROXEN [Suspect]
     Indication: SUICIDE ATTEMPT
     Route: 048

REACTIONS (5)
  - BRAIN DEATH [None]
  - COMPLETED SUICIDE [None]
  - HYPOTENSION [None]
  - HYPOTHERMIA [None]
  - METABOLIC ACIDOSIS [None]
